FAERS Safety Report 25533112 (Version 1)
Quarter: 2025Q3

REPORT INFORMATION
  Report Type: Spontaneous
  Country: CA (occurrence: CA)
  Receive Date: 20250709
  Receipt Date: 20250709
  Transmission Date: 20251020
  Serious: Yes (Life-Threatening, Hospitalization, Other)
  Sender: BRISTOL-MYERS SQUIBB COMPANY
  Company Number: CA-BRISTOL-MYERS SQUIBB COMPANY-2025-095745

PATIENT
  Age: 82 Year
  Sex: Male
  Weight: 83 kg

DRUGS (1)
  1. OPDIVO [Suspect]
     Active Substance: NIVOLUMAB
     Indication: Metastatic malignant melanoma
     Route: 042

REACTIONS (11)
  - Atrioventricular block complete [Recovered/Resolved with Sequelae]
  - Autoimmune myocarditis [Recovered/Resolved with Sequelae]
  - Conduction disorder [Recovered/Resolved with Sequelae]
  - Hepatitis [Recovered/Resolved with Sequelae]
  - Myasthenia gravis [Recovered/Resolved with Sequelae]
  - Myocarditis [Recovered/Resolved with Sequelae]
  - Myositis [Recovered/Resolved with Sequelae]
  - Thyroiditis [Recovered/Resolved with Sequelae]
  - Vestibulitis [Recovered/Resolved with Sequelae]
  - Hospitalisation [Unknown]
  - Adverse event [Unknown]
